FAERS Safety Report 7926500 (Version 2)
Quarter: 2012Q4

REPORT INFORMATION
  Report Type: 
  Country: US (occurrence: US)
  Receive Date: 20110502
  Receipt Date: 20121120
  Transmission Date: 20130627
  Serious: No
  Sender: FDA-Public Use
  Company Number: US-ASTRAZENECA-2010SE56722

PATIENT
  Age: 39 Year
  Sex: Female

DRUGS (1)
  1. NEXIUM [Suspect]
     Route: 048

REACTIONS (6)
  - Dysphonia [Unknown]
  - Speech disorder [Unknown]
  - Oesophageal ulcer [Unknown]
  - Throat irritation [Unknown]
  - Malaise [Unknown]
  - Drug dose omission [Unknown]
